FAERS Safety Report 8967210 (Version 1)
Quarter: 2012Q4

REPORT INFORMATION
  Report Type: Report from Study
  Country: DE (occurrence: DE)
  Receive Date: 20121214
  Receipt Date: 20121214
  Transmission Date: 20130627
  Serious: Yes (Death, Hospitalization)
  Sender: FDA-Public Use
  Company Number: DE-AMGEN-DEUCT2012080302

PATIENT
  Age: 74 Year
  Sex: Female
  Weight: 66 kg

DRUGS (14)
  1. ASS [Concomitant]
     Indication: ATRIAL FIBRILLATION
     Dosage: 100 mg, 1x/day
     Route: 048
  2. SIMVASTATIN [Concomitant]
     Indication: HYPERLIPIDAEMIA
     Dosage: 40 mg, 1x/day
     Route: 048
     Dates: start: 2005
  3. RAMIPRIL [Concomitant]
     Indication: HYPERTENSION
     Dosage: 5 mg, 2x/day
     Route: 048
  4. COLECALCIFEROL [Concomitant]
     Indication: OSTEOPOROSIS
     Dosage: 20000 IU, every two weeks
  5. PREDNISOLON                        /00016201/ [Concomitant]
     Indication: RHEUMATOID ARTHRITIS
     Dosage: 2 mg, 1x/day
     Route: 048
     Dates: start: 200511
  6. TILIDIN [Concomitant]
     Indication: RHEUMATOID ARTHRITIS
     Dosage: 50 mg, 2x/day
     Route: 048
  7. METAMIZOLE [Concomitant]
     Indication: RHEUMATOID ARTHRITIS
     Dosage: 4 x 30 guttae
  8. DEXKETOPROFEN [Concomitant]
     Indication: RHEUMATOID ARTHRITIS
     Dosage: 25 mg, 1x/day
     Route: 048
  9. LYRICA [Concomitant]
     Indication: RHEUMATOID ARTHRITIS
     Dosage: 75 mg, 2x/day
     Route: 048
  10. ETANERCEPT [Suspect]
     Indication: RHEUMATOID ARTHRITIS
     Dosage: 50 mg, qwk
     Dates: start: 20110927
  11. FALITHROM [Concomitant]
     Indication: ATRIAL FIBRILLATION
     Dosage: UNK
  12. PANTOPRAZOL [Concomitant]
     Indication: PROPHYLAXIS
     Dosage: 40 mg, 1x/day
     Route: 048
  13. TORASEMIDE [Concomitant]
     Indication: HYPERTENSION
     Dosage: 20 mg, 2x/day
     Route: 048
  14. AMLODIPINE [Concomitant]
     Indication: HYPERTENSION
     Dosage: 5 mg, 2x/day
     Route: 048

REACTIONS (1)
  - Oedema peripheral [Fatal]
